FAERS Safety Report 20933968 (Version 2)
Quarter: 2022Q2

REPORT INFORMATION
  Report Type: Spontaneous
  Country: GB (occurrence: GB)
  Receive Date: 20220608
  Receipt Date: 20220622
  Transmission Date: 20220721
  Serious: Yes (Life-Threatening, Hospitalization, Other)
  Sender: FDA-Public Use
  Company Number: GB-009507513-2206GBR000487

PATIENT
  Age: 75 Year
  Sex: Male

DRUGS (1)
  1. PEMBROLIZUMAB [Suspect]
     Active Substance: PEMBROLIZUMAB
     Indication: Metastatic malignant melanoma
     Dosage: ONE DOSE

REACTIONS (4)
  - Immune-mediated myocarditis [Unknown]
  - Myocarditis [Unknown]
  - Immune-mediated myositis [Recovering/Resolving]
  - Myasthenia gravis [Recovering/Resolving]
